FAERS Safety Report 13393345 (Version 1)
Quarter: 2017Q1

REPORT INFORMATION
  Report Type: Report from Study
  Country: DE (occurrence: DE)
  Receive Date: 20170331
  Receipt Date: 20170331
  Transmission Date: 20170429
  Serious: Yes (Other)
  Sender: FDA-Public Use
  Company Number: DE-JNJFOC-20170333012

PATIENT

DRUGS (1)
  1. INFLIXIMAB, RECOMBINANT [Suspect]
     Active Substance: INFLIXIMAB
     Indication: ANKYLOSING SPONDYLITIS
     Route: 042

REACTIONS (15)
  - Leukopenia [Unknown]
  - Hepatitis [Unknown]
  - Sinusitis [Unknown]
  - Pulmonary granuloma [Recovered/Resolved]
  - Pharyngitis [Unknown]
  - Rhinitis [Unknown]
  - Iridocyclitis [Unknown]
  - Upper respiratory tract infection [Unknown]
  - Headache [Unknown]
  - Herpes simplex [Unknown]
  - Diarrhoea [Unknown]
  - Systemic lupus erythematosus rash [Unknown]
  - Tendonitis [Unknown]
  - Polyarthritis [Unknown]
  - Hepatic function abnormal [Unknown]
